FAERS Safety Report 9933153 (Version 1)
Quarter: 2014Q1

REPORT INFORMATION
  Report Type: Spontaneous
  Country: US (occurrence: US)
  Receive Date: 20140228
  Receipt Date: 20140228
  Transmission Date: 20141002
  Serious: No
  Sender: FDA-Public Use
  Company Number: US-GLAXOSMITHKLINE-A1051476A

PATIENT
  Sex: Female

DRUGS (1)
  1. LAMICTAL [Suspect]
     Indication: EPILEPSY
     Dosage: 150MG UNKNOWN
     Route: 065
     Dates: start: 20100318

REACTIONS (3)
  - Malaise [Unknown]
  - Nasopharyngitis [Unknown]
  - Bronchitis [Unknown]
